FAERS Safety Report 12460505 (Version 2)
Quarter: 2016Q2

REPORT INFORMATION
  Report Type: Spontaneous
  Country: TR (occurrence: TR)
  Receive Date: 20160613
  Receipt Date: 20160624
  Transmission Date: 20160815
  Serious: Yes (Death, Other)
  Sender: FDA-Public Use
  Company Number: TR-CELGENEUS-TUR-2016057164

PATIENT

DRUGS (1)
  1. AZACITIDINE. [Suspect]
     Active Substance: AZACITIDINE
     Indication: MYELODYSPLASTIC SYNDROME
     Route: 065

REACTIONS (3)
  - Adverse event [Unknown]
  - Death [Fatal]
  - Acute myeloid leukaemia [Unknown]
